FAERS Safety Report 7328463-2 (Version None)
Quarter: 2011Q1

REPORT INFORMATION
  Report Type: 
  Country: None (occurrence: None)
  Receive Date: 20110303
  Receipt Date: 20110228
  Transmission Date: 20110831
  Serious: Yes (Other)
  Sender: FDA-Public Use
  Company Number: US-PFIZER INC-2010175883

PATIENT
  Age: 83 Year
  Sex: Female

DRUGS (6)
  1. ATENOLOL [Concomitant]
     Dosage: 50 MG, UNK
  2. ASCORBIC ACID [Concomitant]
  3. ADVIL LIQUI-GELS [Suspect]
     Indication: GROIN PAIN
     Dosage: 2 TABLETS, 3X/DAY
     Route: 048
     Dates: start: 20090101
  4. NORVASC [Concomitant]
     Dosage: 5 MG, UNK
  5. MULTI-VITAMINS [Concomitant]
  6. ACETYLSALICYLIC ACID [Concomitant]

REACTIONS (4)
  - PRODUCT SIZE ISSUE [None]
  - DYSPHAGIA [None]
  - THROMBOSIS [None]
  - DRUG EFFECT DECREASED [None]
